FAERS Safety Report 4425764-2 (Version None)
Quarter: 2004Q3

REPORT INFORMATION
  Report Type: 
  Country: None (occurrence: None)
  Receive Date: 20040810
  Receipt Date: 20040729
  Transmission Date: 20050211
  Serious: Yes (Hospitalization)
  Sender: FDA-Public Use
  Company Number: STA-AE-04-MTX-338

PATIENT
  Age: 60 Year
  Sex: Female

DRUGS (15)
  1. METHOTREXATE [Suspect]
     Indication: RHEUMATOID ARTHRITIS
     Dosage: 20 MG 1X PER 1 WK, ORAL
     Route: 048
  2. ARAVA [Suspect]
     Indication: RHEUMATOID ARTHRITIS
     Dosage: 20 MG 1X PER 1 DAY, ORAL
     Route: 048
  3. PENICILLAMINE [Suspect]
     Indication: RHEUMATOID ARTHRITIS
     Dosage: 250 MG 1X PER 1 DAY, ORAL
     Route: 048
  4. PREDNISOLONE [Suspect]
  5. GLICLAZIDE (GLICLAZIDE) [Concomitant]
  6. FOLIC ACID [Concomitant]
  7. VERAPAMIL [Concomitant]
  8. OMERPRAZOLE [Concomitant]
  9. CLONIDINE [Concomitant]
  10. ESTRADIOL [Concomitant]
  11. TENOXICAM (TENOXICAM) [Concomitant]
  12. PENICILLIN [Concomitant]
  13. IPRATROPIUM (IPRATATROPIUM) [Concomitant]
  14. BECLOMETHASONE DIPROPIONATE [Concomitant]
  15. ALBUTEROL [Concomitant]

REACTIONS (4)
  - ESCHERICHIA URINARY TRACT INFECTION [None]
  - PANCYTOPENIA [None]
  - PHARYNGOLARYNGEAL PAIN [None]
  - PYREXIA [None]
